FAERS Safety Report 8970171 (Version 1)
Quarter: 2012Q4

REPORT INFORMATION
  Report Type: 
  Country: US (occurrence: US)
  Receive Date: 20121218
  Receipt Date: 20121218
  Transmission Date: 20130627
  Serious: No
  Sender: FDA-Public Use
  Company Number: US-ABBOTT-12P-163-1007673-00

PATIENT
  Age: 47 Year
  Sex: Female
  Weight: 54.03 kg

DRUGS (4)
  1. PROMETRIUM [Suspect]
     Indication: MENSTRUATION IRREGULAR
     Dosage: For 12 days each month
     Dates: start: 20121107
  2. PROMETRIUM [Suspect]
     Indication: MENORRHAGIA
  3. KLOR-CON [Concomitant]
     Indication: PRODUCT USED FOR UNKNOWN INDICATION
  4. ALDACTONE [Concomitant]
     Indication: BLOOD POTASSIUM DECREASED

REACTIONS (3)
  - Off label use [Unknown]
  - Dizziness [Recovered/Resolved]
  - Gait disturbance [Recovered/Resolved]
